FAERS Safety Report 4394612-1 (Version None)
Quarter: 2004Q3

REPORT INFORMATION
  Report Type: 
  Country: None (occurrence: None)
  Receive Date: 20040706
  Receipt Date: 20040623
  Transmission Date: 20050211
  Serious: Yes (Other)
  Sender: FDA-Public Use
  Company Number: 2004028063

PATIENT
  Age: 35 Year
  Sex: Female
  Weight: 124.2856 kg

DRUGS (9)
  1. ZYRTEC [Suspect]
     Indication: HYPERSENSITIVITY
     Dosage: 10 MG (10 MG, 1 IN 1 D), ORAL
     Route: 048
     Dates: start: 19990101
  2. FLUTICASONE PROPIONATE [Suspect]
     Indication: HYPERSENSITIVITY
     Dosage: INHALATION
     Route: 055
     Dates: start: 19990101, end: 20040501
  3. AMITRIPTYLINE HYDROCHLORIDE [Suspect]
     Indication: FIBROMYALGIA
     Dosage: ORAL
     Route: 048
     Dates: start: 20010101
  4. CARBAMAZEPINE [Suspect]
     Indication: FIBROMYALGIA
     Dates: start: 20030101, end: 20030101
  5. PAROXETINE HCL [Concomitant]
  6. ALPRAZOLAM [Concomitant]
  7. IBUPROFEN [Concomitant]
  8. MONTELUKAST SODIUM (MONTELUKAST SODIUM) [Concomitant]
  9. LANSOPRAZOLE [Concomitant]

REACTIONS (7)
  - EYE PRURITUS [None]
  - FIBROMYALGIA [None]
  - HEADACHE [None]
  - INTRAOCULAR PRESSURE INCREASED [None]
  - PRURITUS [None]
  - SLEEP APNOEA SYNDROME [None]
  - WEIGHT INCREASED [None]
